FAERS Safety Report 5161497-5 (Version None)
Quarter: 2006Q4

REPORT INFORMATION
  Report Type: 
  Country: None (occurrence: None)
  Receive Date: 20061130
  Receipt Date: 20060823
  Transmission Date: 20070319
  Serious: No
  Sender: FDA-Public Use
  Company Number: US-GLAXOSMITHKLINE-A0617820A

PATIENT
  Age: 28 Year
  Sex: Male

DRUGS (3)
  1. WELLBUTRIN XL [Suspect]
     Dosage: 300MG PER DAY
     Route: 048
     Dates: start: 20040101, end: 20050101
  2. XANAX [Concomitant]
  3. AMBIEN [Concomitant]

REACTIONS (7)
  - AMNESIA [None]
  - DEHYDRATION [None]
  - DISTURBANCE IN ATTENTION [None]
  - FEELING JITTERY [None]
  - INSOMNIA [None]
  - MIGRAINE [None]
  - PHOTOSENSITIVITY REACTION [None]
